FAERS Safety Report 8583346-5 (Version None)
Quarter: 2012Q3

REPORT INFORMATION
  Report Type: 
  Country: None (occurrence: None)
  Receive Date: 20120809
  Receipt Date: 20120801
  Transmission Date: 20120928
  Serious: Yes (Other)
  Sender: FDA-Public Use
  Company Number: US-UCBSA-063048

PATIENT
  Sex: Female

DRUGS (3)
  1. NEUPRO [Suspect]
  2. NEUPRO [Suspect]
     Dates: start: 20120716, end: 20120701
  3. NEUPRO [Suspect]
     Dates: start: 20120701, end: 20120101

REACTIONS (3)
  - APPLICATION SITE PRURITUS [None]
  - OVARIAN CANCER [None]
  - DRUG INEFFECTIVE [None]
